FAERS Safety Report 13771488 (Version 1)
Quarter: 2017Q3

REPORT INFORMATION
  Report Type: Report from Study
  Country: CN (occurrence: CN)
  Receive Date: 20170720
  Receipt Date: 20170720
  Transmission Date: 20171127
  Serious: Yes (Other)
  Sender: FDA-Public Use
  Company Number: CN-ACCORD-053743

PATIENT

DRUGS (2)
  1. GEMCITABINE/GEMCITABINE HYDROCHLORIDE [Suspect]
     Active Substance: GEMCITABINE\GEMCITABINE HYDROCHLORIDE
     Indication: LUNG SQUAMOUS CELL CARCINOMA STAGE III
     Dosage: BAI ON DAY 1 AND INTRAVENOUS INFUSION ON DAY 8
  2. CISPLATIN. [Suspect]
     Active Substance: CISPLATIN
     Indication: LUNG SQUAMOUS CELL CARCINOMA STAGE III
     Dosage: BAI ON DAY 1 AND INTRAVENOUS INFUSION?ON DAY 2) EVERY 3 WEEKS

REACTIONS (3)
  - Leukopenia [Unknown]
  - Neutropenia [Unknown]
  - Nausea [Unknown]
